FAERS Safety Report 5056703-1 (Version None)
Quarter: 2006Q2

REPORT INFORMATION
  Report Type: 
  Country: None (occurrence: None)
  Receive Date: 20060616
  Receipt Date: 20060510
  Transmission Date: 20061013
  Serious: No
  Sender: FDA-Public Use
  Company Number: 2006US000553

PATIENT
  Age: 81 Year
  Sex: Female

DRUGS (9)
  1. VESICARE [Suspect]
     Indication: INCONTINENCE
     Dosage: 5 MG, ORAL
     Route: 048
  2. FOSAMAX [Concomitant]
  3. TOPROL-XL [Concomitant]
  4. BENICAR [Concomitant]
  5. VYTORIN [Concomitant]
  6. NEXIUM [Concomitant]
  7. ALPHAGAN [Concomitant]
  8. TRAVATAN [Concomitant]
  9. NASACORT [Concomitant]

REACTIONS (1)
  - VISION BLURRED [None]
